FAERS Safety Report 19743880 (Version 1)
Quarter: 2021Q3

REPORT INFORMATION
  Report Type: Spontaneous
  Country: IN (occurrence: IN)
  Receive Date: 20210824
  Receipt Date: 20210824
  Transmission Date: 20211014
  Serious: Yes (Death, Hospitalization, Other)
  Sender: FDA-Public Use
  Company Number: IN-SETONPHARMA-2021SETLIT00025

PATIENT
  Sex: Female

DRUGS (4)
  1. METHYLPREDNISOLONE. [Interacting]
     Active Substance: METHYLPREDNISOLONE
     Indication: LUPUS PANCREATITIS
     Route: 042
  2. CYCLOPHOSPHAMIDE. [Interacting]
     Active Substance: CYCLOPHOSPHAMIDE
     Indication: LUPUS PANCREATITIS
     Route: 042
  3. PREDNISOLONE. [Suspect]
     Active Substance: PREDNISOLONE
     Indication: SYSTEMIC LUPUS ERYTHEMATOSUS
     Route: 065
  4. PREDNISOLONE. [Suspect]
     Active Substance: PREDNISOLONE
     Route: 065

REACTIONS (8)
  - Pyrexia [Unknown]
  - Hypoalbuminaemia [Unknown]
  - Abdominal pain [Unknown]
  - Lupus pancreatitis [Unknown]
  - Acute respiratory distress syndrome [Unknown]
  - Intra-abdominal fluid collection [Unknown]
  - Sepsis [Unknown]
  - Septic shock [Fatal]
